FAERS Safety Report 7285627-4 (Version None)
Quarter: 2011Q1

REPORT INFORMATION
  Report Type: 
  Country: None (occurrence: None)
  Receive Date: 20110210
  Receipt Date: 20110201
  Transmission Date: 20110831
  Serious: Yes (Hospitalization)
  Sender: FDA-Public Use
  Company Number: A0873065A

PATIENT
  Age: 42 Year
  Sex: Female

DRUGS (2)
  1. AVANDIA [Suspect]
     Indication: DIABETES MELLITUS
     Route: 048
     Dates: end: 20020101
  2. AVANDAMET [Suspect]
     Indication: DIABETES MELLITUS
     Route: 048
     Dates: start: 20020101, end: 20040101

REACTIONS (8)
  - EYE DISORDER [None]
  - UTERINE CANCER [None]
  - CARDIAC FAILURE CHRONIC [None]
  - ANGINA PECTORIS [None]
  - RENAL DISORDER [None]
  - MYOCARDIAL INFARCTION [None]
  - RETINAL HAEMORRHAGE [None]
  - BLINDNESS [None]
